APPROVED DRUG PRODUCT: TERBINAFINE HYDROCHLORIDE
Active Ingredient: TERBINAFINE HYDROCHLORIDE
Strength: 1%
Dosage Form/Route: CREAM;TOPICAL
Application: A077511 | Product #001
Applicant: SUN PHARMA CANADA INC
Approved: Jul 2, 2007 | RLD: No | RS: No | Type: OTC